FAERS Safety Report 19157342 (Version 1)
Quarter: 2021Q2

REPORT INFORMATION
  Report Type: Spontaneous
  Country: US (occurrence: US)
  Receive Date: 20210419
  Receipt Date: 20210419
  Transmission Date: 20210717
  Serious: No
  Sender: FDA-Public Use
  Company Number: None

PATIENT
  Sex: Female
  Weight: 66.15 kg

DRUGS (1)
  1. EQUATE CAPSAICIN PAIN RELIEVING [Suspect]
     Active Substance: CAPSAICIN
     Indication: ARTHRALGIA
     Dosage: ?          QUANTITY:1 PATCH(ES);OTHER FREQUENCY:1 PATCH FOR 4 HOUR;?
     Route: 062
     Dates: start: 20210416, end: 20210416

REACTIONS (5)
  - Application site pain [None]
  - Application site rash [None]
  - Application site bruise [None]
  - Application site erythema [None]
  - Application site pruritus [None]

NARRATIVE: CASE EVENT DATE: 20210416
